FAERS Safety Report 13403735 (Version 1)
Quarter: 2017Q2

REPORT INFORMATION
  Report Type: Spontaneous
  Country: US (occurrence: US)
  Receive Date: 20170405
  Receipt Date: 20170405
  Transmission Date: 20170830
  Serious: Yes (Hospitalization, Disabling, Other)
  Sender: FDA-Public Use
  Company Number: US-SA-2017SA055474

PATIENT
  Age: 62 Year
  Sex: Female

DRUGS (2)
  1. LANTUS SOLOSTAR [Suspect]
     Active Substance: INSULIN GLARGINE
     Dosage: DOSE:60 IU IN MORNING AND 40 IU IN NIGHT
     Route: 065
     Dates: start: 2015
  2. SOLOSTAR [Concomitant]
     Active Substance: DEVICE
     Dates: start: 2015

REACTIONS (6)
  - Pneumonia [Unknown]
  - Insomnia [Unknown]
  - Fall [Unknown]
  - Product use issue [Unknown]
  - Arthropathy [Unknown]
  - Femur fracture [Unknown]

NARRATIVE: CASE EVENT DATE: 2015
